FAERS Safety Report 23606468 (Version 1)
Quarter: 2024Q1

REPORT INFORMATION
  Report Type: Spontaneous
  Country: FR (occurrence: FR)
  Receive Date: 20240307
  Receipt Date: 20240307
  Transmission Date: 20240410
  Serious: Yes (Life-Threatening, Hospitalization)
  Sender: FDA-Public Use
  Company Number: None

PATIENT
  Age: 66 Year
  Sex: Male
  Weight: 65 kg

DRUGS (9)
  1. AMIODARONE [Suspect]
     Active Substance: AMIODARONE
     Indication: Atrial fibrillation
     Dosage: 200.000MG QD
     Route: 048
     Dates: start: 20231211
  2. CARBOPLATIN [Suspect]
     Active Substance: CARBOPLATIN
     Indication: Lung neoplasm malignant
     Dosage: AUC 4
     Route: 042
     Dates: start: 20231212, end: 20240123
  3. KEYTRUDA [Suspect]
     Active Substance: PEMBROLIZUMAB
     Indication: Lung neoplasm malignant
     Dosage: 200.000MG TIW
     Route: 042
     Dates: start: 20231212, end: 20240123
  4. PEMETREXED [Suspect]
     Active Substance: PEMETREXED
     Indication: Lung neoplasm malignant
     Dosage: 500.000MG/M2 TIW
     Route: 042
     Dates: start: 20231212, end: 20240123
  5. BISOPROLOL [Concomitant]
     Active Substance: BISOPROLOL\BISOPROLOL FUMARATE
     Indication: Atrial fibrillation
     Dosage: 2.500MG QD
     Route: 048
     Dates: start: 20231211
  6. ELIQUIS [Concomitant]
     Active Substance: APIXABAN
     Indication: Thrombosis prophylaxis
     Dosage: 1.000DF BID, COMPRESSED PELLICLE
     Route: 048
  7. ESOMEPRAZOLE [Concomitant]
     Active Substance: ESOMEPRAZOLE
     Indication: Gastrooesophageal reflux disease
     Dosage: 20.000MG QD
     Route: 048
  8. ESOMEPRAZOLE [Concomitant]
     Active Substance: ESOMEPRAZOLE
     Indication: Gastrooesophageal reflux disease
     Dosage: 20.000MG QD
     Route: 048
  9. VENLAFAXINE HCL [Concomitant]
     Active Substance: VENLAFAXINE HYDROCHLORIDE
     Indication: Gastrooesophageal reflux disease
     Dosage: 37.500MG QD
     Route: 048

REACTIONS (1)
  - Acute respiratory distress syndrome [Not Recovered/Not Resolved]

NARRATIVE: CASE EVENT DATE: 20240129
